FAERS Safety Report 6552547-X (Version None)
Quarter: 2010Q1

REPORT INFORMATION
  Report Type: 
  Country: None (occurrence: None)
  Receive Date: 20100126
  Receipt Date: 20100121
  Transmission Date: 20100710
  Serious: Yes (Disabling)
  Sender: FDA-Public Use
  Company Number: US-PERRIGO-10US006499

PATIENT
  Sex: Female

DRUGS (1)
  1. MINOXIDIL 2% 90DAY WOMEN 856 [Suspect]
     Indication: DRUG USE FOR UNKNOWN INDICATION
     Dosage: UNKNOWN
     Route: 061

REACTIONS (1)
  - BLINDNESS UNILATERAL [None]
